FAERS Safety Report 9405350 (Version 2)
Quarter: 2013Q3

REPORT INFORMATION
  Report Type: Spontaneous
  Country: US (occurrence: US)
  Receive Date: 20130717
  Receipt Date: 20130724
  Transmission Date: 20140515
  Serious: Yes (Hospitalization, Other)
  Sender: FDA-Public Use
  Company Number: US-009507513-1307USA007826

PATIENT
  Age: 53 Year
  Sex: Male
  Weight: 114.74 kg

DRUGS (8)
  1. JANUMET [Suspect]
     Dosage: 50/1000 BID
     Route: 048
     Dates: start: 2010, end: 2013
  2. LIPITOR [Concomitant]
  3. PLAVIX [Concomitant]
  4. ACTOS [Concomitant]
  5. LANTUS [Concomitant]
  6. INVOKANA [Concomitant]
  7. METFORMIN [Concomitant]
  8. INSULIN [Concomitant]

REACTIONS (3)
  - Pancreatitis [Recovered/Resolved]
  - Blood cholesterol increased [Unknown]
  - Renal failure chronic [Unknown]
